FAERS Safety Report 12877224 (Version 1)
Quarter: 2016Q4

REPORT INFORMATION
  Report Type: Spontaneous
  Country: US (occurrence: US)
  Receive Date: 20161021
  Receipt Date: 20161021
  Transmission Date: 20170207
  Serious: No
  Sender: FDA-Public Use
  Company Number: None

PATIENT
  Age: 43 Year
  Sex: Male

DRUGS (3)
  1. ZOFRAN [Concomitant]
     Active Substance: ONDANSETRON HYDROCHLORIDE
  2. TRIUMEQ [Suspect]
     Active Substance: ABACAVIR SULFATE\DOLUTEGRAVIR SODIUM\LAMIVUDINE
     Indication: PRODUCT USED FOR UNKNOWN INDICATION
  3. PRISTIQ EXTENDED-RELEASE [Concomitant]
     Active Substance: DESVENLAFAXINE SUCCINATE

REACTIONS (1)
  - Nausea [None]

NARRATIVE: CASE EVENT DATE: 20161014
